FAERS Safety Report 8315711-5 (Version None)
Quarter: 2012Q2

REPORT INFORMATION
  Report Type: 
  Country: None (occurrence: None)
  Receive Date: 20120426
  Receipt Date: 20120417
  Transmission Date: 20120825
  Serious: Yes (Hospitalization, Disabling)
  Sender: FDA-Public Use
  Company Number: US-MERCK-1112USA00465

PATIENT
  Age: 53 Year
  Sex: Female
  Weight: 64 kg

DRUGS (9)
  1. FOSAMAX PLUS D [Suspect]
     Indication: OSTEOPENIA
     Route: 048
  2. FOSAMAX [Suspect]
     Route: 048
     Dates: start: 20010101, end: 20090101
  3. VITAMINS (UNSPECIFIED) [Concomitant]
     Route: 065
  4. ZOCOR [Concomitant]
     Indication: BLOOD CHOLESTEROL INCREASED
     Route: 048
     Dates: start: 20000101
  5. OMEGA-3 MARINE TRIGLYCERIDES [Concomitant]
     Route: 065
  6. FOSAMAX [Suspect]
     Route: 048
     Dates: start: 20010101, end: 20090101
  7. CALCIUM (UNSPECIFIED) [Concomitant]
     Route: 065
  8. FOSAMAX [Suspect]
     Indication: OSTEOPOROSIS
     Route: 048
     Dates: start: 20010101, end: 20090101
  9. FOSAMAX [Suspect]
     Indication: OSTEOPENIA
     Route: 048
     Dates: start: 20010101, end: 20090101

REACTIONS (46)
  - CARDIAC MURMUR [None]
  - INTERVERTEBRAL DISC DEGENERATION [None]
  - GASTROINTESTINAL DISORDER [None]
  - PAIN IN EXTREMITY [None]
  - VITAMIN D DEFICIENCY [None]
  - NASAL SEPTUM DEVIATION [None]
  - FRACTURE NONUNION [None]
  - PROCEDURAL NAUSEA [None]
  - ACNE [None]
  - HYPERLIPIDAEMIA [None]
  - NEUROMA [None]
  - MICTURITION URGENCY [None]
  - LIBIDO DECREASED [None]
  - IMPAIRED HEALING [None]
  - VAGINAL DYSPLASIA [None]
  - RHEUMATOID ARTHRITIS [None]
  - BONE DENSITY DECREASED [None]
  - URTICARIA [None]
  - FOOT FRACTURE [None]
  - DRUG HYPERSENSITIVITY [None]
  - BURSITIS [None]
  - VISUAL ACUITY REDUCED [None]
  - DYSPLASIA [None]
  - FATIGUE [None]
  - HAEMATURIA [None]
  - VAGINAL DISORDER [None]
  - URGE INCONTINENCE [None]
  - FEMUR FRACTURE [None]
  - ADVERSE DRUG REACTION [None]
  - PAIN [None]
  - DYSPEPSIA [None]
  - SLEEP APNOEA SYNDROME [None]
  - SINUS POLYP [None]
  - DYSURIA [None]
  - DRUG INTOLERANCE [None]
  - BACK PAIN [None]
  - GASTROOESOPHAGEAL REFLUX DISEASE [None]
  - ONYCHOMYCOSIS [None]
  - MEMORY IMPAIRMENT [None]
  - COUGH [None]
  - LIMB DISCOMFORT [None]
  - ARTHRALGIA [None]
  - NEPHROLITHIASIS [None]
  - PARONYCHIA [None]
  - TENDONITIS [None]
  - INSOMNIA [None]
